FAERS Safety Report 21575442 (Version 5)
Quarter: 2023Q2

REPORT INFORMATION
  Report Type: Report from Study
  Country: JP (occurrence: JP)
  Receive Date: 20221110
  Receipt Date: 20230609
  Transmission Date: 20230722
  Serious: Yes (Hospitalization)
  Sender: FDA-Public Use
  Company Number: JP-CHUGAI-2022043947

PATIENT
  Age: 50 Year
  Sex: Female
  Weight: 48.8 kg

DRUGS (24)
  1. ATEZOLIZUMAB [Suspect]
     Active Substance: ATEZOLIZUMAB
     Indication: Hormone receptor positive breast cancer
     Dosage: 840 MILLIGRAM
     Route: 042
     Dates: start: 20220610
  2. ATEZOLIZUMAB [Suspect]
     Active Substance: ATEZOLIZUMAB
     Indication: HER2 negative breast cancer
  3. PACLITAXEL [Suspect]
     Active Substance: PACLITAXEL
     Indication: Breast cancer metastatic
     Dosage: 140 MILLIGRAM
     Route: 042
     Dates: start: 20220610, end: 20221014
  4. PACLITAXEL [Suspect]
     Active Substance: PACLITAXEL
     Dosage: 65 MILLIGRAM/SQ. METER
     Route: 042
     Dates: start: 20220610
  5. BEVACIZUMAB [Suspect]
     Active Substance: BEVACIZUMAB
     Indication: Breast cancer metastatic
     Dosage: 581 MILLIGRAM
     Route: 042
     Dates: start: 20220610, end: 20221014
  6. BEVACIZUMAB [Suspect]
     Active Substance: BEVACIZUMAB
     Dosage: 10 MILLIGRAM/KILOGRAM
     Route: 042
     Dates: start: 20220610
  7. MIROGABALIN BESYLATE [Suspect]
     Active Substance: MIROGABALIN BESYLATE
     Indication: Neuropathy peripheral
     Dosage: 20 MILLIGRAM/DAY
     Route: 048
     Dates: start: 20220902
  8. CALCIUM CARBONATE\CHOLECALCIFEROL\MAGNESIUM CARBONATE [Suspect]
     Active Substance: CALCIUM CARBONATE\CHOLECALCIFEROL\MAGNESIUM CARBONATE
     Indication: Product used for unknown indication
     Dosage: 2 DOSAGE FORM
     Route: 048
     Dates: end: 20221101
  9. FUROSEMIDE [Suspect]
     Active Substance: FUROSEMIDE
     Indication: Oedema
     Dosage: 20 MILLIGRAM/DAY
     Route: 048
     Dates: start: 20220930, end: 20221101
  10. SPIRONOLACTONE [Suspect]
     Active Substance: SPIRONOLACTONE
     Indication: Oedema
     Dosage: 25 MILLIGRAM/DAY
     Route: 048
     Dates: start: 20220930
  11. MAGNESIUM OXIDE [Suspect]
     Active Substance: MAGNESIUM OXIDE
     Indication: Constipation
     Dosage: 990 MILLIGRAM/DAY
     Route: 048
     Dates: end: 20221101
  12. MAGNESIUM OXIDE [Suspect]
     Active Substance: MAGNESIUM OXIDE
     Route: 048
  13. SHAKUYAKUKANZOTO [Suspect]
     Active Substance: HERBALS
     Indication: Pain
     Dosage: 7.5 MILLIGRAM/DAY
     Route: 048
     Dates: end: 20221101
  14. METHYLCOBALAMIN [Concomitant]
     Active Substance: METHYLCOBALAMIN
     Indication: Neuropathy peripheral
     Dosage: UNK
     Route: 048
  15. AMLODIPINE BESYLATE [Concomitant]
     Active Substance: AMLODIPINE BESYLATE
     Indication: Hypertension
     Dosage: 2.5 MILLIGRAM/DAY
     Route: 048
     Dates: start: 20220812
  16. OXYCODONE HYDROCHLORIDE [Concomitant]
     Active Substance: OXYCODONE HYDROCHLORIDE
     Indication: Breast cancer metastatic
     Dosage: 40 MILLIGRAM/DAY
     Route: 048
  17. OXYCODONE HYDROCHLORIDE [Concomitant]
     Active Substance: OXYCODONE HYDROCHLORIDE
     Indication: Breast cancer metastatic
     Dosage: 5 MILLIGRAM/DAY
     Route: 048
  18. TRIAMCINOLONE [Concomitant]
     Active Substance: TRIAMCINOLONE
     Indication: Stomatitis
     Dosage: 25 MICROGRAM/DAY
     Route: 061
     Dates: start: 20221014
  19. GENTAMICIN SULFATE [Concomitant]
     Active Substance: GENTAMICIN SULFATE
     Indication: Paronychia
     Dosage: UNK, PRN
     Route: 061
     Dates: start: 20221014
  20. AVASTIN [Concomitant]
     Active Substance: BEVACIZUMAB
     Indication: Hormone receptor positive breast cancer
     Dosage: 581 MILLIGRAM
     Route: 041
     Dates: start: 20220610, end: 20221014
  21. AVASTIN [Concomitant]
     Active Substance: BEVACIZUMAB
     Indication: HER2 negative breast cancer
  22. PACLITAXEL [Concomitant]
     Active Substance: PACLITAXEL
     Indication: Hormone receptor positive breast cancer
     Dosage: 140 MILLIGRAM
     Route: 042
     Dates: start: 20220610, end: 20221014
  23. PACLITAXEL [Concomitant]
     Active Substance: PACLITAXEL
     Indication: HER2 negative breast cancer
  24. OXYCODONE HYDROCHLORIDE [Concomitant]
     Active Substance: OXYCODONE HYDROCHLORIDE
     Indication: Breast cancer metastatic
     Route: 048

REACTIONS (3)
  - Acute kidney injury [Recovered/Resolved]
  - Adrenal insufficiency [Recovering/Resolving]
  - Gingivitis [Recovered/Resolved]

NARRATIVE: CASE EVENT DATE: 20221101
